FAERS Safety Report 11225463 (Version 2)
Quarter: 2015Q4

REPORT INFORMATION
  Report Type: Spontaneous
  Country: US (occurrence: US)
  Receive Date: 20150629
  Receipt Date: 20151219
  Transmission Date: 20160304
  Serious: Yes (Other)
  Sender: FDA-Public Use
  Company Number: US-009507513-1506USA006928

PATIENT
  Age: 42 Year
  Sex: Female
  Weight: 86.62 kg

DRUGS (3)
  1. WELLBUTRIN [Concomitant]
     Active Substance: BUPROPION HYDROCHLORIDE
     Dosage: UNK
  2. ATORVASTATIN [Concomitant]
     Active Substance: ATORVASTATIN
     Dosage: UNK
  3. NEXPLANON [Suspect]
     Active Substance: ETONOGESTREL
     Indication: CONTRACEPTION
     Dosage: 1 IMPLANT/ EVERY THREE YEARS
     Route: 058
     Dates: start: 20150402, end: 20150602

REACTIONS (4)
  - Purulent discharge [Not Recovered/Not Resolved]
  - Implant site cellulitis [Recovered/Resolved]
  - Implant site cellulitis [Recovered/Resolved]
  - Implant site cellulitis [Recovered/Resolved]

NARRATIVE: CASE EVENT DATE: 20150408
